FAERS Safety Report 6623955-3 (Version None)
Quarter: 2010Q1

REPORT INFORMATION
  Report Type: 
  Country: None (occurrence: None)
  Receive Date: 20100310
  Receipt Date: 20100304
  Transmission Date: 20100710
  Serious: Yes (Hospitalization)
  Sender: FDA-Public Use
  Company Number: KR-SANOFI-AVENTIS-2010SA009464

PATIENT
  Age: 47 Year
  Sex: Male
  Weight: 66.4 kg

DRUGS (14)
  1. AFLIBERCEPT [Suspect]
     Indication: NON-SMALL CELL LUNG CANCER METASTATIC
     Route: 042
     Dates: start: 20091013, end: 20091013
  2. AFLIBERCEPT [Suspect]
     Route: 042
     Dates: start: 20100127, end: 20100127
  3. DOCETAXEL [Suspect]
     Indication: NON-SMALL CELL LUNG CANCER METASTATIC
     Route: 042
     Dates: start: 20091013, end: 20091013
  4. DOCETAXEL [Suspect]
     Route: 042
     Dates: start: 20100127, end: 20100127
  5. CORTICOSTEROIDS [Concomitant]
  6. DEXAMETHASONE [Concomitant]
     Dates: start: 20091013
  7. DIAZEPAM [Concomitant]
     Dates: start: 20091013
  8. PHENIRAMINE [Concomitant]
     Dates: start: 20091013
  9. TAGAMET [Concomitant]
     Dates: start: 20091013
  10. OXYCODONE HCL [Concomitant]
     Dates: start: 20091013
  11. CIPROFLOXACIN [Concomitant]
     Dates: start: 20091018
  12. NEUPOGEN [Concomitant]
     Dates: start: 20091104
  13. COUGH SYRUP [Concomitant]
     Dates: start: 20091215
  14. ALLEGRA D 24 HOUR [Concomitant]
     Dates: start: 20100106

REACTIONS (1)
  - HYPERKALAEMIA [None]
